FAERS Safety Report 10103182 (Version 1)
Quarter: 2014Q2

REPORT INFORMATION
  Report Type: Spontaneous
  Country: US (occurrence: US)
  Receive Date: 20140424
  Receipt Date: 20140424
  Transmission Date: 20141212
  Serious: No
  Sender: FDA-Public Use
  Company Number: US-BRISTOL-MYERS SQUIBB COMPANY-20157178

PATIENT
  Age: 87 Year
  Sex: Female

DRUGS (3)
  1. ELIQUIS [Suspect]
     Dates: start: 20140101
  2. LIPITOR [Concomitant]
  3. OMEPRAZOLE [Concomitant]

REACTIONS (3)
  - Eye pruritus [Recovering/Resolving]
  - Swelling face [Recovering/Resolving]
  - Eye swelling [Recovering/Resolving]
